FAERS Safety Report 22776725 (Version 4)
Quarter: 2024Q1

REPORT INFORMATION
  Report Type: Spontaneous
  Country: DE (occurrence: DE)
  Receive Date: 20230802
  Receipt Date: 20240226
  Transmission Date: 20240409
  Serious: Yes (Death, Disabling, Congenital Anomaly, Other)
  Sender: FDA-Public Use
  Company Number: DE-SA-BI2016BI13338BI

PATIENT
  Sex: Female
  Weight: 0.056 kg

DRUGS (38)
  1. NICODERM CQ [Suspect]
     Active Substance: NICOTINE
     Indication: Foetal exposure during pregnancy
     Dosage: DOSE DESCRIPTION : FROM GESTATIONAL WEEK 0-14?PARENT ROUTE: TRANSPLACENTAL
     Route: 064
  2. ASPIRIN [Suspect]
     Active Substance: ASPIRIN
     Indication: Foetal exposure during pregnancy
     Dosage: DOSE DESCRIPTION : FROM GESTATIONAL WEEK 0-14?PARENT ROUTE: ORAL
     Route: 064
     Dates: start: 20111214, end: 20120320
  3. ASPIRIN [Suspect]
     Active Substance: ASPIRIN
     Dosage: DOSE DESCRIPTION : FROM GESTATIONAL WEEK 0-14?PARENT ROUTE: ORAL
     Route: 064
  4. PANTOPRAZOLE [Suspect]
     Active Substance: PANTOPRAZOLE
     Indication: Foetal exposure during pregnancy
     Dosage: DOSE DESCRIPTION : FROM GESTATIONAL WEEK 0-14?40 [MG/D]; 0-13.6 GESTATIONAL WEEK?PARENT ROUTE: ORAL
     Route: 064
     Dates: start: 20111214, end: 20120320
  5. METAMIZOLE SODIUM [Suspect]
     Active Substance: METAMIZOLE SODIUM
     Indication: Foetal exposure during pregnancy
     Dosage: DOSE DESCRIPTION : FROM GESTATIONAL WEEK 0-14
     Route: 064
  6. RITUXIMAB [Suspect]
     Active Substance: RITUXIMAB
     Indication: Systemic lupus erythematosus
     Dosage: LAST TIME IN DECEMBER 2011: PRE OR PERICONCEPTIONAL?PARENT ROUTE: SUBCUTANEOUS
     Route: 064
     Dates: end: 201112
  7. SIMVASTATIN [Suspect]
     Active Substance: SIMVASTATIN
     Indication: Foetal exposure during pregnancy
     Dosage: DOSE DESCRIPTION : FROM GESTATIONAL WEEK 0-14?PARENT ROUTE: ORAL
     Route: 064
     Dates: start: 20111214, end: 20120320
  8. RAMIPRIL [Suspect]
     Active Substance: RAMIPRIL
     Indication: Foetal exposure during pregnancy
     Dosage: DOSE DESCRIPTION : 20 MG, QD  FROM GESTATIONAL WEEK 0-113+6?20 MG UNK FROM GESTATIONAL WEEK 0-113+6
     Route: 064
     Dates: start: 20111214, end: 20120320
  9. TACROLIMUS [Suspect]
     Active Substance: TACROLIMUS
     Indication: Foetal exposure during pregnancy
     Dosage: DOSE DESCRIPTION : FROM GESTATIONAL WEEK 0-14?PARENT ROUTE: ORAL
     Route: 064
     Dates: start: 20111214, end: 20120320
  10. TACROLIMUS [Suspect]
     Active Substance: TACROLIMUS
     Indication: Systemic lupus erythematosus
     Dosage: DOSE DESCRIPTION : FROM GESTATIONAL WEEK 0-14
     Route: 064
  11. TACROLIMUS [Suspect]
     Active Substance: TACROLIMUS
     Indication: Embolism venous
  12. PREDNISOLONE [Suspect]
     Active Substance: PREDNISOLONE
     Indication: Foetal exposure during pregnancy
     Dosage: FROM GESTATIONAL WEEK 0-14?PARENT ROUTE: ORAL
     Route: 064
     Dates: start: 20111214, end: 20120320
  13. PREDNISOLONE [Suspect]
     Active Substance: PREDNISOLONE
     Dosage: DOSE DESCRIPTION : UNK UNK,UNK
     Route: 064
  14. PREDNISOLONE [Suspect]
     Active Substance: PREDNISOLONE
     Dosage: DOSE DESCRIPTION : FROM GESTATIONAL WEEK 0-14
     Route: 064
  15. PREDNISOLONE [Suspect]
     Active Substance: PREDNISOLONE
     Dosage: FROM GESTATIONAL WEEK 0-14
  16. EZETIMIBE [Suspect]
     Active Substance: EZETIMIBE
     Indication: Foetal exposure during pregnancy
     Dosage: DOSE DESCRIPTION : TABLET FROM GESTATIONAL WEEK 0-14?PARENT ROUTE: TRANSPLACENTAL
     Route: 064
  17. EZETIMIBE [Suspect]
     Active Substance: EZETIMIBE
     Dosage: FROM GESTATIONAL WEEK 0-14
  18. XARELTO [Suspect]
     Active Substance: RIVAROXABAN
     Indication: Foetal exposure during pregnancy
     Dosage: FROM GESTATIONAL WEEK 0-5?PARENT ROUTE: ORAL
     Route: 064
  19. ENOXAPARIN SODIUM [Suspect]
     Active Substance: ENOXAPARIN SODIUM
     Indication: Pulmonary embolism
     Dosage: FROM GESTATIONAL WEEK 0-14?200 MG/D (2X100)?PARENT ROUTE: SUBCUTANEOUS
     Route: 064
     Dates: start: 20111214, end: 20120320
  20. DALTEPARIN SODIUM [Suspect]
     Active Substance: DALTEPARIN SODIUM
     Indication: Product used for unknown indication
     Dosage: DOSE DESCRIPTION : UNK
     Route: 064
  21. ALISKIREN [Suspect]
     Active Substance: ALISKIREN
     Indication: Foetal exposure during pregnancy
     Dosage: 300 [MG/D]; 0-4.6 GESTATIONAL WEEK?PARENT ROUTE: ORAL
     Route: 064
     Dates: start: 20111214, end: 20120117
  22. ALISKIREN [Suspect]
     Active Substance: ALISKIREN
     Route: 064
  23. ENOXAPARIN SODIUM [Suspect]
     Active Substance: ENOXAPARIN SODIUM
     Indication: Product used for unknown indication
     Dosage: DOSE DESCRIPTION : FROM GESTATIONAL WEEK 0-14
     Route: 064
  24. TORSEMIDE [Suspect]
     Active Substance: TORSEMIDE
     Indication: Foetal exposure during pregnancy
     Dosage: FROM GESTATIONAL WEEK 0-14?PARENT ROUTE: ORAL
     Route: 064
     Dates: start: 20111214, end: 20120320
  25. TORSEMIDE [Suspect]
     Active Substance: TORSEMIDE
     Dosage: DOSE DESCRIPTION : UNK UNK,UNK
     Route: 064
  26. TORSEMIDE [Suspect]
     Active Substance: TORSEMIDE
     Dosage: FROM GESTATIONAL WEEK 0-14
     Route: 064
  27. RIVAROXABAN [Suspect]
     Active Substance: RIVAROXABAN
     Indication: Foetal exposure during pregnancy
     Dosage: DOSE DESCRIPTION : FROM GESTATIONAL WEEK 0-5
     Route: 064
  28. HYDROXYCHLOROQUINE SULFATE [Suspect]
     Active Substance: HYDROXYCHLOROQUINE SULFATE
     Indication: Foetal exposure during pregnancy
     Dosage: FROM GESTATIONAL WEEK 0-14?PARENT ROUTE: ORAL
     Route: 064
     Dates: start: 20111214, end: 20120320
  29. HYDROXYCHLOROQUINE SULFATE [Suspect]
     Active Substance: HYDROXYCHLOROQUINE SULFATE
     Dosage: DOSE DESCRIPTION : UNK UNK,UNK
     Route: 064
  30. ALBUTEROL SULFATE [Suspect]
     Active Substance: ALBUTEROL SULFATE
     Indication: Foetal exposure during pregnancy
     Dosage: FROM GESTATIONAL WEEK 0-14
     Route: 064
  31. ALBUTEROL SULFATE [Suspect]
     Active Substance: ALBUTEROL SULFATE
     Dosage: DOSE DESCRIPTION : UNK UNK,UNK
     Route: 065
  32. HEPARIN [Suspect]
     Active Substance: HEPARIN SODIUM
     Indication: Foetal exposure during pregnancy
     Dosage: UNK UNK,UNK
     Route: 064
  33. HEPARIN [Suspect]
     Active Substance: HEPARIN SODIUM
     Dosage: UNK UNK,UNK
  34. HEPARIN [Suspect]
     Active Substance: HEPARIN SODIUM
     Dosage: UNK UNK,UNK
     Route: 064
  35. METAMIZOLE [Suspect]
     Active Substance: METAMIZOLE
     Indication: Foetal exposure during pregnancy
     Dosage: UNK; TRIMESTER: FIRST; PROBABLY ONLY IN HOSPITAL IN WEEK 5
     Route: 064
  36. CYCLOPHOSPHAMIDE [Concomitant]
     Active Substance: CYCLOPHOSPHAMIDE
     Indication: Systemic lupus erythematosus
     Dosage: 3000 [MG CUMULATIVE]; PRECONCEPTIONAL
     Route: 064
     Dates: start: 201104, end: 201108
  37. MIFEPRISTONE [Concomitant]
     Active Substance: MIFEPRISTONE
     Indication: Abortion induced
     Dosage: UNK; 13.6 GESTATIONAL WEEK?PARENT ROUTE: ORAL
     Route: 064
     Dates: start: 20120320, end: 20120320
  38. CYTOTEC [Concomitant]
     Active Substance: MISOPROSTOL
     Indication: Abortion induced
     Dosage: UNK; 13.6 GESTATIONAL WEEK?PARENT ROUTE: ORAL
     Route: 064
     Dates: start: 20120320, end: 20120320

REACTIONS (10)
  - Congenital cardiovascular anomaly [Fatal]
  - Abortion induced [Fatal]
  - Cardiac septal defect [Fatal]
  - Heart disease congenital [Fatal]
  - Foetal exposure during pregnancy [Fatal]
  - Ventricular septal defect [Fatal]
  - Truncus arteriosus persistent [Fatal]
  - Premature baby [Unknown]
  - Low birth weight baby [Unknown]
  - Foetal exposure during pregnancy [Unknown]
